FAERS Safety Report 10601499 (Version 1)
Quarter: 2014Q4

REPORT INFORMATION
  Report Type: Spontaneous
  Country: US (occurrence: US)
  Receive Date: 20141124
  Receipt Date: 20141124
  Transmission Date: 20150529
  Serious: No
  Sender: FDA-Public Use
  Company Number: US-TEVA-514179USA

PATIENT
  Age: 61 Year
  Sex: Female

DRUGS (7)
  1. CEPHALEXIN. [Concomitant]
     Active Substance: CEPHALEXIN
     Dosage: 2000 MILLIGRAM DAILY;
     Dates: start: 2014
  2. VITAMIN E [Concomitant]
     Active Substance: .ALPHA.-TOCOPHEROL
  3. CEPHALEXIN. [Concomitant]
     Active Substance: CEPHALEXIN
     Dosage: 1000 MILLIGRAM DAILY;
     Dates: start: 2014
  4. MYRBETRIQ [Concomitant]
     Active Substance: MIRABEGRON
     Indication: BLADDER DISORDER
     Dosage: 25 MILLIGRAM DAILY;
  5. DESONIDE. [Concomitant]
     Active Substance: DESONIDE
  6. MULTIVITAMIN [Concomitant]
     Active Substance: VITAMINS
  7. MUPIROCIN. [Suspect]
     Active Substance: MUPIROCIN
     Indication: BIOPSY LIP
     Dates: start: 2014, end: 20141002

REACTIONS (3)
  - Drug hypersensitivity [Not Recovered/Not Resolved]
  - Lip pain [Not Recovered/Not Resolved]
  - Cheilitis [Not Recovered/Not Resolved]

NARRATIVE: CASE EVENT DATE: 20141001
